FAERS Safety Report 5695287-1 (Version None)
Quarter: 2008Q2

REPORT INFORMATION
  Report Type: 
  Country: None (occurrence: None)
  Receive Date: 20080404
  Receipt Date: 20080325
  Transmission Date: 20081010
  Serious: Yes (Other)
  Sender: FDA-Public Use
  Company Number: US-PFIZER INC-2008027667

PATIENT
  Sex: Female
  Weight: 47.7 kg

DRUGS (6)
  1. CHANTIX [Suspect]
     Indication: SMOKING CESSATION THERAPY
  2. PLAVIX [Concomitant]
  3. LIPITOR [Concomitant]
  4. ALPRAZOLAM [Concomitant]
  5. PRILOSEC [Concomitant]
  6. VITAMINS [Concomitant]

REACTIONS (1)
  - SELF-INJURIOUS IDEATION [None]
